FAERS Safety Report 6077071-2 (Version None)
Quarter: 2009Q1

REPORT INFORMATION
  Report Type: 
  Country: None (occurrence: None)
  Receive Date: 20090213
  Receipt Date: 20090204
  Transmission Date: 20090719
  Serious: Yes (Hospitalization)
  Sender: FDA-Public Use
  Company Number: AU-CELGENEUS-008-20785-09020187

PATIENT
  Sex: Male
  Weight: 96 kg

DRUGS (4)
  1. THALIDOMIDE [Suspect]
     Indication: MYELODYSPLASTIC SYNDROME
     Route: 048
     Dates: start: 20081008, end: 20090202
  2. VIDAZA [Suspect]
     Indication: MYELODYSPLASTIC SYNDROME
     Route: 058
     Dates: start: 20080225, end: 20090203
  3. PREDNISOLONE [Concomitant]
     Indication: URTICARIA
     Route: 048
     Dates: start: 20081010
  4. EXJADE [Concomitant]
     Indication: REFLUX GASTRITIS
     Route: 048
     Dates: start: 20080818

REACTIONS (2)
  - CONSTIPATION [None]
  - INFECTION [None]
